FAERS Safety Report 12056747 (Version 2)
Quarter: 2016Q2

REPORT INFORMATION
  Report Type: Spontaneous
  Country: US (occurrence: US)
  Receive Date: 20160210
  Receipt Date: 20160510
  Transmission Date: 20160815
  Serious: No
  Sender: FDA-Public Use
  Company Number: US-TEVA-629310USA

PATIENT
  Age: 54 Year
  Sex: Female
  Weight: 59.93 kg

DRUGS (12)
  1. CELECOXIB. [Suspect]
     Active Substance: CELECOXIB
     Indication: SWELLING
  2. CELECOXIB. [Suspect]
     Active Substance: CELECOXIB
     Indication: ARTHRALGIA
  3. CELECOXIB. [Suspect]
     Active Substance: CELECOXIB
     Indication: PAIN
     Dosage: 200 MILLIGRAM DAILY;
     Route: 065
     Dates: start: 20160113
  4. OXYCONTIN [Concomitant]
     Active Substance: OXYCODONE HYDROCHLORIDE
     Indication: PAIN
     Dosage: 20 MILLIGRAM DAILY;
     Route: 048
  5. PRAVASTATIN [Concomitant]
     Active Substance: PRAVASTATIN\PRAVASTATIN SODIUM
     Indication: BLOOD CHOLESTEROL INCREASED
     Dosage: 40 MILLIGRAM DAILY;
     Route: 048
  6. METOPROLOL. [Concomitant]
     Active Substance: METOPROLOL
     Indication: HEART RATE INCREASED
     Dosage: 50 MILLIGRAM DAILY;
  7. CELECOXIB. [Suspect]
     Active Substance: CELECOXIB
     Indication: FACIAL PAIN
  8. CELECOXIB. [Suspect]
     Active Substance: CELECOXIB
     Indication: PAIN
  9. FUROSEMIDE. [Concomitant]
     Active Substance: FUROSEMIDE
     Indication: FLUID RETENTION
     Dosage: 20 MILLIGRAM DAILY;
     Route: 048
     Dates: start: 1998
  10. CVS PHARMACY STOOL SOFTENER [Concomitant]
     Indication: CONSTIPATION
     Dosage: 3 DOSAGE FORMS DAILY; 3 TIMES A DAY, GELCAP BY MOUTH
     Route: 048
  11. AMITRIPTYLINE [Concomitant]
     Active Substance: AMITRIPTYLINE
     Indication: PAIN
     Dosage: 50 MILLIGRAM DAILY;
     Dates: start: 1998
  12. CYCLOBENZAPRINE [Concomitant]
     Active Substance: CYCLOBENZAPRINE
     Indication: PAIN
     Dosage: 20 MILLIGRAM DAILY;
     Route: 048

REACTIONS (13)
  - Neck pain [Not Recovered/Not Resolved]
  - Drug ineffective [Recovering/Resolving]
  - Limb discomfort [Recovering/Resolving]
  - Pain in extremity [Recovering/Resolving]
  - Peripheral swelling [Unknown]
  - Facial pain [Not Recovered/Not Resolved]
  - Headache [Not Recovered/Not Resolved]
  - Swelling face [Recovering/Resolving]
  - Lip swelling [Not Recovered/Not Resolved]
  - Joint swelling [Recovering/Resolving]
  - Joint crepitation [Recovering/Resolving]
  - Paraesthesia oral [Not Recovered/Not Resolved]
  - Product substitution issue [Recovered/Resolved]

NARRATIVE: CASE EVENT DATE: 201601
